FAERS Safety Report 20053665 (Version 1)
Quarter: 2021Q4

REPORT INFORMATION
  Report Type: Spontaneous
  Country: GR (occurrence: GR)
  Receive Date: 20211110
  Receipt Date: 20211110
  Transmission Date: 20220303
  Serious: Yes (Other)
  Sender: FDA-Public Use
  Company Number: GR-BAYER-2021A245472

PATIENT
  Age: 40 Year
  Sex: Female

DRUGS (1)
  1. ULTRAVIST [Suspect]
     Active Substance: IOPROMIDE
     Indication: Computerised tomogram abdomen
     Dosage: UNK UNK, ONCE
     Route: 042
     Dates: start: 20211105, end: 20211105

REACTIONS (5)
  - Vein rupture [None]
  - Injection site swelling [None]
  - Injection site bruising [None]
  - Injection site pain [None]
  - Injection site extravasation [None]

NARRATIVE: CASE EVENT DATE: 20211105
